FAERS Safety Report 11773809 (Version 1)
Quarter: 2015Q4

REPORT INFORMATION
  Report Type: Spontaneous
  Country: US (occurrence: US)
  Receive Date: 20151124
  Receipt Date: 20151124
  Transmission Date: 20160304
  Serious: Yes (Other)
  Sender: FDA-Public Use
  Company Number: US-AMGEN-USASP2015122300

PATIENT
  Age: 63 Year
  Sex: Female

DRUGS (3)
  1. KEPPRA [Concomitant]
     Active Substance: LEVETIRACETAM
     Dosage: UNK
  2. PROLIA [Suspect]
     Active Substance: DENOSUMAB
     Indication: PRODUCT USED FOR UNKNOWN INDICATION
     Dosage: UNK
     Route: 065
     Dates: end: 201410
  3. TOPAMAX [Concomitant]
     Active Substance: TOPIRAMATE
     Dosage: UNK

REACTIONS (11)
  - Rash [Unknown]
  - Alopecia [Unknown]
  - Back pain [Unknown]
  - Aphasia [Unknown]
  - Gingival recession [Unknown]
  - Trichorrhexis [Unknown]
  - Nephrolithiasis [Recovered/Resolved]
  - Lip swelling [Unknown]
  - Acne [Unknown]
  - Gingival swelling [Recovering/Resolving]
  - Bone swelling [Unknown]
